FAERS Safety Report 8895582 (Version 1)
Quarter: 2012Q4

REPORT INFORMATION
  Report Type: 
  Country: DE (occurrence: DE)
  Receive Date: 20121108
  Receipt Date: 20121108
  Transmission Date: 20130627
  Serious: Yes (Hospitalization)
  Sender: FDA-Public Use
  Company Number: DE-GLAXOSMITHKLINE-D0076970A

PATIENT
  Sex: Male
  Weight: 80 kg

DRUGS (3)
  1. LAMICTAL [Suspect]
     Indication: EPILEPSY
     Route: 048
     Dates: start: 2002
  2. VIMPAT [Concomitant]
     Indication: EPILEPSY
     Dosage: 200MG per day
     Route: 065
     Dates: start: 2008
  3. RAMIPRIL [Concomitant]
     Indication: HYPERTENSION
     Dosage: 5MG per day
     Route: 065

REACTIONS (6)
  - Liver function test abnormal [Recovering/Resolving]
  - Alanine aminotransferase increased [Recovering/Resolving]
  - Aspartate aminotransferase increased [Recovering/Resolving]
  - Gamma-glutamyltransferase increased [Recovering/Resolving]
  - Hepatic steatosis [Unknown]
  - Hepatotoxicity [Unknown]
